FAERS Safety Report 7646610-X (Version None)
Quarter: 2011Q3

REPORT INFORMATION
  Report Type: 
  Country: None (occurrence: None)
  Receive Date: 20110711
  Receipt Date: 20110314
  Transmission Date: 20111222
  Serious: Yes (Other)
  Sender: FDA-Public Use
  Company Number: IPC201103-000281

PATIENT

DRUGS (3)
  1. METOCLOPRAMIDE HYDROCHLORIDE [Suspect]
     Dates: start: 20080801, end: 20100201
  2. METOCLOPRAMIDE [Suspect]
     Dates: start: 20080801, end: 20100201
  3. REGLAN [Suspect]
     Dates: start: 20080801, end: 20100201

REACTIONS (2)
  - TARDIVE DYSKINESIA [None]
  - DYSKINESIA [None]
